FAERS Safety Report 5988315-7 (Version None)
Quarter: 2008Q4

REPORT INFORMATION
  Report Type: 
  Country: None (occurrence: None)
  Receive Date: 20081210
  Receipt Date: 20081204
  Transmission Date: 20090506
  Serious: Yes (Hospitalization)
  Sender: FDA-Public Use
  Company Number: US-BIOGENIDEC-2008BI025287

PATIENT
  Age: 57 Year
  Sex: Male
  Weight: 83 kg

DRUGS (2)
  1. AVONEX [Suspect]
     Indication: MULTIPLE SCLEROSIS
     Route: 030
     Dates: start: 19981001, end: 20030901
  2. AVONEX [Suspect]
     Route: 030
     Dates: start: 20030901

REACTIONS (6)
  - DRUG DEPENDENCE [None]
  - FALL [None]
  - MUSCLE ATROPHY [None]
  - PAIN IN EXTREMITY [None]
  - SPEECH DISORDER [None]
  - UPPER LIMB FRACTURE [None]
